FAERS Safety Report 11877560 (Version 6)
Quarter: 2016Q2

REPORT INFORMATION
  Report Type: Report from Study
  Country: US (occurrence: US)
  Receive Date: 20151230
  Receipt Date: 20160609
  Transmission Date: 20160815
  Serious: Yes (Other)
  Sender: FDA-Public Use
  Company Number: US-AMGEN-USASL2015134721

PATIENT
  Age: 85 Year
  Sex: Female
  Weight: 63.39 kg

DRUGS (2)
  1. REPATHA [Suspect]
     Active Substance: EVOLOCUMAB
     Indication: HYPERCHOLESTEROLAEMIA
     Dosage: 140 MG, Q2WK
     Route: 058
     Dates: start: 20151209, end: 20151223
  2. LIDOCAINE. [Concomitant]
     Active Substance: LIDOCAINE

REACTIONS (11)
  - Abdominal discomfort [Unknown]
  - Neuropathy peripheral [Recovering/Resolving]
  - Erythema [Unknown]
  - Malaise [Unknown]
  - Pain in extremity [Recovering/Resolving]
  - Back pain [Not Recovered/Not Resolved]
  - Rash [Recovering/Resolving]
  - Mobility decreased [Not Recovered/Not Resolved]
  - Peripheral swelling [Not Recovered/Not Resolved]
  - Cellulitis [Unknown]
  - Arthralgia [Not Recovered/Not Resolved]

NARRATIVE: CASE EVENT DATE: 201512
